FAERS Safety Report 13417450 (Version 2)
Quarter: 2017Q2

REPORT INFORMATION
  Report Type: Report from Study
  Country: CO (occurrence: CO)
  Receive Date: 20170407
  Receipt Date: 20170508
  Transmission Date: 20170830
  Serious: Yes (Other)
  Sender: FDA-Public Use
  Company Number: PHHY2016CO107002

PATIENT
  Age: 73 Year
  Sex: Male
  Weight: 63 kg

DRUGS (3)
  1. ENALAPRIL [Concomitant]
     Active Substance: ENALAPRIL
     Indication: BLOOD PRESSURE ABNORMAL
     Dosage: 5 MG, UNK
     Route: 065
  2. VOTRIENT [Suspect]
     Active Substance: PAZOPANIB HYDROCHLORIDE
     Indication: SOFT TISSUE SARCOMA
     Dosage: 400 MG, QD
     Route: 048
     Dates: start: 20160627, end: 20170228
  3. METFORMIN [Concomitant]
     Active Substance: METFORMIN HYDROCHLORIDE
     Indication: PRODUCT USED FOR UNKNOWN INDICATION
     Dosage: 8 MG, UNK
     Route: 065

REACTIONS (12)
  - Diarrhoea [Unknown]
  - Abdominal pain upper [Unknown]
  - Eating disorder [Unknown]
  - Malaise [Unknown]
  - Dry skin [Unknown]
  - Asthenia [Unknown]
  - Parkinson^s disease [Unknown]
  - Feeling abnormal [Unknown]
  - Cachexia [Unknown]
  - Vomiting [Unknown]
  - Erythema [Unknown]
  - Weight decreased [Unknown]

NARRATIVE: CASE EVENT DATE: 20170215
